FAERS Safety Report 8998127 (Version 4)
Quarter: 2013Q1

REPORT INFORMATION
  Report Type: Spontaneous
  Country: CA (occurrence: CA)
  Receive Date: 20130104
  Receipt Date: 20130321
  Transmission Date: 20140127
  Serious: Yes (Death, Other)
  Sender: FDA-Public Use
  Company Number: CA-FRI-1000041380

PATIENT
  Age: 69 Year
  Sex: Female

DRUGS (3)
  1. TEFLARO [Suspect]
     Indication: BACTERAEMIA
     Dosage: 1200 MG
     Dates: start: 20121224
  2. TEFLARO [Suspect]
     Indication: BACTERAEMIA
     Dosage: 600 MG
  3. TEFLARO [Suspect]
     Indication: BACTERAEMIA

REACTIONS (2)
  - Renal impairment [Unknown]
  - Death [Fatal]
